FAERS Safety Report 11394715 (Version 2)
Quarter: 2015Q4

REPORT INFORMATION
  Report Type: Spontaneous
  Country: LB (occurrence: LB)
  Receive Date: 20150819
  Receipt Date: 20151109
  Transmission Date: 20160304
  Serious: Yes (Death, Hospitalization)
  Sender: FDA-Public Use
  Company Number: LB-SA-2015SA122383

PATIENT
  Age: 83 Year
  Sex: Male
  Weight: 80 kg

DRUGS (1)
  1. TAXOTERE [Suspect]
     Active Substance: DOCETAXEL
     Indication: NON-SMALL CELL LUNG CANCER
     Dosage: EVERY 15 DAYS
     Route: 065
     Dates: start: 20120622, end: 20120710

REACTIONS (6)
  - Pneumonia [Unknown]
  - Loss of consciousness [Unknown]
  - Multi-organ failure [Fatal]
  - General physical health deterioration [Fatal]
  - Disease progression [Fatal]
  - Hypoglycaemia [Unknown]

NARRATIVE: CASE EVENT DATE: 20120713
